FAERS Safety Report 10156519 (Version 2)
Quarter: 2014Q2

REPORT INFORMATION
  Report Type: Spontaneous
  Country: US (occurrence: US)
  Receive Date: 20140507
  Receipt Date: 20140516
  Transmission Date: 20141212
  Serious: Yes (Hospitalization)
  Sender: FDA-Public Use
  Company Number: US-ROCHE-1396683

PATIENT
  Age: 88 Year
  Sex: Male

DRUGS (8)
  1. LUCENTIS [Suspect]
     Indication: AGE-RELATED MACULAR DEGENERATION
     Dosage: RIGHT EYE
     Route: 050
     Dates: start: 20140127
  2. LUCENTIS [Suspect]
     Dosage: LEFT EYE
     Route: 050
     Dates: start: 20140205
  3. LUCENTIS [Suspect]
     Dosage: BOTH EYES
     Route: 050
     Dates: start: 20140313
  4. NAPROXEN [Suspect]
     Indication: PRODUCT USED FOR UNKNOWN INDICATION
     Route: 065
  5. TENORMIN [Concomitant]
     Indication: HYPERTENSION
     Dosage: FOR MANY YEARS
     Route: 065
     Dates: end: 201403
  6. AMLODIPINE [Concomitant]
     Indication: HYPERTENSION
     Route: 065
  7. LASIX [Concomitant]
     Indication: POLYURIA
     Route: 065
  8. SIMVASTATIN [Concomitant]
     Indication: BLOOD CHOLESTEROL
     Dosage: AT BEDTIME
     Route: 065

REACTIONS (5)
  - Myocardial infarction [Recovered/Resolved]
  - Pneumonia [Recovered/Resolved]
  - Malaise [Recovered/Resolved]
  - Cough [Recovered/Resolved]
  - Drug hypersensitivity [Unknown]
